FAERS Safety Report 23080523 (Version 1)
Quarter: 2023Q4

REPORT INFORMATION
  Report Type: Spontaneous
  Country: US (occurrence: None)
  Receive Date: 20231018
  Receipt Date: 20231018
  Transmission Date: 20240109
  Serious: Yes (Hospitalization)
  Sender: FDA-Public Use
  Company Number: None

PATIENT
  Age: 72 Year
  Sex: Male
  Weight: 64.4 kg

DRUGS (1)
  1. APIXABAN [Suspect]
     Active Substance: APIXABAN
     Dosage: FREQUENCY : TWICE A DAY;?
     Route: 048
     Dates: start: 20220413, end: 20221111

REACTIONS (6)
  - Anaemia [None]
  - Gastric ulcer haemorrhage [None]
  - Therapy interrupted [None]
  - Haemodynamic instability [None]
  - Arteriovenous fistula thrombosis [None]
  - Arteriovenous fistula site complication [None]

NARRATIVE: CASE EVENT DATE: 20221112
